FAERS Safety Report 10047868 (Version 2)
Quarter: 2014Q2

REPORT INFORMATION
  Report Type: Spontaneous
  Country: US (occurrence: US)
  Receive Date: 20140331
  Receipt Date: 20140402
  Transmission Date: 20141212
  Serious: Yes (Hospitalization)
  Sender: FDA-Public Use
  Company Number: US-BAXTER-2014BAX015660

PATIENT
  Sex: Male

DRUGS (6)
  1. DIANEAL LOW CALCIUM [Suspect]
     Indication: PERITONEAL DIALYSIS
     Route: 033
     Dates: start: 2013, end: 20131111
  2. DIANEAL LOW CALCIUM [Suspect]
     Route: 033
     Dates: start: 201401
  3. DIANEAL LOW CALCIUM [Suspect]
     Indication: PERITONEAL DIALYSIS
     Route: 033
     Dates: start: 2013, end: 20131111
  4. DIANEAL LOW CALCIUM [Suspect]
     Route: 033
     Dates: start: 201401
  5. DIANEAL LOW CALCIUM [Suspect]
     Indication: PERITONEAL DIALYSIS
     Route: 033
     Dates: start: 2013, end: 20131111
  6. DIANEAL LOW CALCIUM [Suspect]
     Route: 033
     Dates: start: 201401

REACTIONS (2)
  - Fungal peritonitis [Recovered/Resolved]
  - Peritoneal dialysis complication [Recovered/Resolved]
